FAERS Safety Report 7595196-7 (Version None)
Quarter: 2011Q3

REPORT INFORMATION
  Report Type: 
  Country: None (occurrence: None)
  Receive Date: 20110707
  Receipt Date: 20110704
  Transmission Date: 20111222
  Serious: Yes (Other)
  Sender: FDA-Public Use
  Company Number: DK-PFIZER INC-2011149723

PATIENT
  Age: 31 Year
  Sex: Male
  Weight: 70 kg

DRUGS (1)
  1. DEPO-MEDROL [Suspect]
     Indication: EPICONDYLITIS
     Dosage: TOTAL OF 6 INJECTIONS
     Dates: start: 20100101

REACTIONS (1)
  - CHORIORETINOPATHY [None]
